FAERS Safety Report 26002227 (Version 1)
Quarter: 2025Q4

REPORT INFORMATION
  Report Type: Spontaneous
  Country: CA (occurrence: CA)
  Receive Date: 20251105
  Receipt Date: 20251105
  Transmission Date: 20260118
  Serious: Yes (Other)
  Sender: CELLTRION
  Company Number: CA-CELLTRION INC.-2025CA027136

PATIENT

DRUGS (3)
  1. INFLIXIMAB [Suspect]
     Active Substance: INFLIXIMAB
     Indication: Colitis ulcerative
     Dosage: 900 MILLIGRAM EVERY 6 WEEKS
     Route: 042
     Dates: start: 20250806
  2. INFLIXIMAB [Suspect]
     Active Substance: INFLIXIMAB
     Dosage: 900 MILLIGRAM EVERY 6 WEEKS
     Route: 042
  3. INFLIXIMAB [Suspect]
     Active Substance: INFLIXIMAB
     Dosage: 900 MILLIGRAM EVERY 6 WEEKS
     Route: 042

REACTIONS (2)
  - Prostate cancer [Unknown]
  - Off label use [Unknown]

NARRATIVE: CASE EVENT DATE: 20250806
